FAERS Safety Report 8174521-2 (Version None)
Quarter: 2012Q1

REPORT INFORMATION
  Report Type: 
  Country: None (occurrence: None)
  Receive Date: 20120229
  Receipt Date: 20120222
  Transmission Date: 20120608
  Serious: No
  Sender: FDA-Public Use
  Company Number: GB-ABBOTT-12P-167-0902420-00

PATIENT
  Age: 40 Year
  Sex: Female

DRUGS (1)
  1. HUMIRA [Suspect]
     Indication: RHEUMATOID ARTHRITIS
     Dates: start: 20111101, end: 20120101

REACTIONS (2)
  - GENERALISED ERYTHEMA [None]
  - PAIN OF SKIN [None]
